FAERS Safety Report 9100724 (Version 1)
Quarter: 2013Q1

REPORT INFORMATION
  Report Type: Spontaneous
  Country: US (occurrence: US)
  Receive Date: 20130214
  Receipt Date: 20130214
  Transmission Date: 20140127
  Serious: Yes (Other)
  Sender: FDA-Public Use
  Company Number: PHEH2013US003581

PATIENT
  Age: 55 Year
  Sex: 0

DRUGS (1)
  1. GILENYA [Suspect]
     Indication: MULTIPLE SCLEROSIS
     Dosage: 0.5 MG, QD
     Route: 048
     Dates: start: 20120731, end: 20130208

REACTIONS (2)
  - Bladder disorder [Recovering/Resolving]
  - Blood pressure increased [Recovered/Resolved]
